FAERS Safety Report 21183431 (Version 1)
Quarter: 2022Q3

REPORT INFORMATION
  Report Type: Spontaneous
  Country: CA (occurrence: CA)
  Receive Date: 20220808
  Receipt Date: 20220808
  Transmission Date: 20221026
  Serious: Yes (Hospitalization, Other)
  Sender: FDA-Public Use
  Company Number: CA-AUROBINDO-AUR-APL-2022-030543

PATIENT
  Age: 60 Year
  Sex: Male

DRUGS (2)
  1. TRANDOLAPRIL [Suspect]
     Active Substance: TRANDOLAPRIL
     Indication: Product used for unknown indication
     Route: 065
  2. METFORMIN [Concomitant]
     Active Substance: METFORMIN HYDROCHLORIDE
     Indication: Product used for unknown indication

REACTIONS (2)
  - Acute kidney injury [Unknown]
  - Drug-disease interaction [Unknown]
